FAERS Safety Report 4987216-0 (Version None)
Quarter: 2006Q2

REPORT INFORMATION
  Report Type: 
  Country: None (occurrence: None)
  Receive Date: 20060501
  Receipt Date: 20060418
  Transmission Date: 20061013
  Serious: Yes (Hospitalization)
  Sender: FDA-Public Use
  Company Number: JP-MERCK-0604USA03282

PATIENT
  Age: 72 Year
  Sex: Male

DRUGS (9)
  1. SINGULAIR [Suspect]
     Indication: ASTHMA
     Route: 048
     Dates: start: 20060116, end: 20060202
  2. SUNRYTHM [Concomitant]
     Route: 065
  3. PRORENAL [Concomitant]
     Route: 048
     Dates: end: 20060317
  4. THEO-DUR [Concomitant]
     Route: 048
     Dates: start: 20051217
  5. FLUTIDE [Concomitant]
     Route: 055
  6. HOKUNALIN [Concomitant]
     Route: 061
     Dates: start: 20060116, end: 20060217
  7. ALTAT [Concomitant]
     Route: 065
  8. PREDONINE [Concomitant]
     Route: 065
     Dates: start: 20040601
  9. ETIZOLAM [Concomitant]
     Route: 048

REACTIONS (1)
  - JAUNDICE [None]
